FAERS Safety Report 17511668 (Version 3)
Quarter: 2020Q1

REPORT INFORMATION
  Report Type: Spontaneous
  Country: GB (occurrence: GB)
  Receive Date: 20200307
  Receipt Date: 20200331
  Transmission Date: 20200409
  Serious: Yes (Hospitalization, Other)
  Sender: FDA-Public Use
  Company Number: GB-AUROBINDO-AUR-APL-2020-011049

PATIENT
  Age: 90 Year
  Sex: Female

DRUGS (8)
  1. ATORVASTATIN 40 MG [Interacting]
     Active Substance: ATORVASTATIN
     Indication: TRANSIENT ISCHAEMIC ATTACK
     Dosage: 160 MILLIGRAM, ONCE A DAY
     Route: 065
  2. CLOPIDOGREL [Suspect]
     Active Substance: CLOPIDOGREL BISULFATE
     Indication: TRANSIENT ISCHAEMIC ATTACK
     Dosage: 300 MILLIGRAM, ONCE A DAY
     Route: 065
  3. CLOPIDOGREL [Interacting]
     Active Substance: CLOPIDOGREL BISULFATE
     Dosage: 75 MILLIGRAM, ONCE A DAY (STARTED FOLLOWING TIA CLINIC APPOINTMENT ON DAY 20 )
     Route: 065
  4. NIFEDIPINE. [Interacting]
     Active Substance: NIFEDIPINE
     Indication: HYPERTENSION
     Dosage: 40 MILLIGRAM, ONCE A DAY
     Route: 065
  5. ATORVASTATIN 40 MG [Interacting]
     Active Substance: ATORVASTATIN
     Dosage: 40 MILLIGRAM, ONCE A DAY, (ONCE NIGHTLY (STARTED IN TIA CLINIC FOLLOW-UP APPOINTMENT) ON DAY 92)
     Route: 065
  6. ASPIRIN. [Concomitant]
     Active Substance: ASPIRIN
     Dosage: 300 MILLIGRAM, ONCE A DAY (BETWEEN DAY 1 AND DAY 20)
     Route: 065
  7. NIFEDIPINE. [Interacting]
     Active Substance: NIFEDIPINE
     Dosage: 10 MILLIGRAM, ONCE A DAY, LONG-STANDING
     Route: 065
  8. ASPIRIN. [Concomitant]
     Active Substance: ASPIRIN
     Indication: PRODUCT USED FOR UNKNOWN INDICATION
     Dosage: 75 MILLIGRAM, ONCE A DAY, BETWEEN DAY 1 AND DAY 20
     Route: 065

REACTIONS (9)
  - Hypergammaglobulinaemia [Unknown]
  - Epistaxis [Recovered/Resolved]
  - Musculoskeletal pain [Recovered/Resolved]
  - Alanine aminotransferase increased [Recovered/Resolved]
  - Potentiating drug interaction [Unknown]
  - Blood alkaline phosphatase increased [Recovered/Resolved]
  - Diverticulum intestinal [Unknown]
  - Drug-induced liver injury [Recovered/Resolved]
  - Drug interaction [Recovered/Resolved]
